FAERS Safety Report 4400808-2 (Version None)
Quarter: 2004Q3

REPORT INFORMATION
  Report Type: 
  Country: None (occurrence: None)
  Receive Date: 20040907
  Receipt Date: 20030617
  Transmission Date: 20050211
  Serious: Yes (Hospitalization)
  Sender: FDA-Public Use
  Company Number: US-BRISTOL-MYERS SQUIBB COMPANY-12302923

PATIENT
  Age: 65 Year
  Sex: Female

DRUGS (17)
  1. COUMADIN [Suspect]
     Indication: ANTICOAGULANT THERAPY
     Dates: start: 20030318, end: 20030321
  2. LEXAPRO [Interacting]
     Indication: DEPRESSION
     Route: 048
     Dates: end: 20030321
  3. LOVENOX [Concomitant]
     Indication: ANTICOAGULANT THERAPY
     Dates: start: 20030318, end: 20030321
  4. PROTONIX [Concomitant]
     Indication: GASTROOESOPHAGEAL REFLUX DISEASE
     Dates: start: 20030318, end: 20030301
  5. ZETIA [Concomitant]
     Indication: HYPERCHOLESTEROLAEMIA
  6. CARAFATE [Concomitant]
     Indication: GASTROOESOPHAGEAL REFLUX DISEASE
     Dates: start: 20030318, end: 20030301
  7. FERROUS SULFATE TAB [Concomitant]
     Indication: ANAEMIA
     Dates: start: 20030318, end: 20030301
  8. ELAVIL [Concomitant]
     Indication: HEADACHE
     Dates: start: 20030318, end: 20030301
  9. PERI-COLACE [Concomitant]
     Indication: CONSTIPATION
     Dosage: DOSE 2 CAPSULES DAILY.
     Dates: start: 20030318, end: 20030301
  10. ROBAXIN [Concomitant]
     Indication: PAIN
  11. REGLAN [Concomitant]
     Indication: GASTRITIS
  12. LORTAB [Concomitant]
     Indication: PAIN
  13. MULTI-VITAMIN [Concomitant]
  14. NYSTATIN [Concomitant]
     Indication: ORAL CANDIDIASIS
  15. SODIUM CHLORIDE 0.9% [Concomitant]
     Dosage: DOSE: ^100 UNITS^.
  16. TOPROL-XL [Concomitant]
     Indication: HYPERTENSION
  17. DIOVAN [Concomitant]
     Indication: HYPERTENSION

REACTIONS (3)
  - DRUG INTERACTION [None]
  - DRUG TOXICITY [None]
  - HYPOTENSION [None]
